FAERS Safety Report 14322100 (Version 1)
Quarter: 2017Q4

REPORT INFORMATION
  Report Type: Spontaneous
  Country: FR (occurrence: FR)
  Receive Date: 20171225
  Receipt Date: 20171225
  Transmission Date: 20180321
  Serious: Yes (Life-Threatening, Hospitalization, Other)
  Sender: FDA-Public Use
  Company Number: FR-ZYDUS-018516

PATIENT
  Age: 36 Year
  Sex: Male

DRUGS (5)
  1. LOXAPINE. [Suspect]
     Active Substance: LOXAPINE
     Indication: PRODUCT USED FOR UNKNOWN INDICATION
     Route: 048
     Dates: start: 20160317, end: 20160409
  2. ALIMEMAZINE [Suspect]
     Active Substance: TRIMEPRAZINE
     Indication: PRODUCT USED FOR UNKNOWN INDICATION
     Dosage: UNK
     Route: 048
     Dates: start: 20160317, end: 20160409
  3. ARIPIPRAZOLE. [Suspect]
     Active Substance: ARIPIPRAZOLE
     Indication: PSYCHOTIC DISORDER
     Dosage: 15 MG, UNK
     Route: 048
     Dates: start: 20160317, end: 20160409
  4. RISPERIDONE. [Suspect]
     Active Substance: RISPERIDONE
     Indication: PSYCHOTIC DISORDER
     Dosage: 1 DF, BID
     Route: 048
     Dates: start: 20160317, end: 20160409
  5. DIAZEPAM. [Suspect]
     Active Substance: DIAZEPAM
     Indication: PSYCHOTIC DISORDER
     Dosage: UNK, TID
     Route: 048
     Dates: start: 20160317, end: 20160409

REACTIONS (8)
  - Pneumonia aspiration [Recovering/Resolving]
  - Hyperhidrosis [Unknown]
  - Extrapyramidal disorder [Unknown]
  - Depressed level of consciousness [Recovering/Resolving]
  - Off label use [Unknown]
  - Apathy [Unknown]
  - Dysphagia [Unknown]
  - Catatonia [Unknown]

NARRATIVE: CASE EVENT DATE: 20160409
